FAERS Safety Report 9620805 (Version 1)
Quarter: 2013Q4

REPORT INFORMATION
  Report Type: Report from Study
  Country: US (occurrence: US)
  Receive Date: 20131015
  Receipt Date: 20131015
  Transmission Date: 20140711
  Serious: Yes (Hospitalization)
  Sender: FDA-Public Use
  Company Number: US-ROCHE-1283845

PATIENT
  Age: 34 Year
  Sex: Female
  Weight: 61.1 kg

DRUGS (6)
  1. BEVACIZUMAB [Suspect]
     Indication: OVARIAN CANCER
     Route: 042
     Dates: start: 20130717, end: 20130807
  2. CARBOPLATIN [Concomitant]
     Indication: OVARIAN CANCER
     Route: 065
     Dates: start: 20130611
  3. PACLITAXEL [Concomitant]
     Indication: OVARIAN CANCER
     Route: 065
     Dates: start: 20130611
  4. COLACE [Concomitant]
     Route: 065
     Dates: start: 201305
  5. ZOFRAN [Concomitant]
     Route: 065
     Dates: start: 201305
  6. COMPAZINE [Concomitant]
     Route: 065
     Dates: start: 201305

REACTIONS (2)
  - Wound dehiscence [Recovered/Resolved]
  - Abdominal hernia [Recovered/Resolved]
